FAERS Safety Report 8849274 (Version 1)
Quarter: 2012Q4

REPORT INFORMATION
  Report Type: Spontaneous
  Country: US (occurrence: None)
  Receive Date: 20121018
  Receipt Date: 20121018
  Transmission Date: 20130627
  Serious: No
  Sender: FDA-Public Use
  Company Number: None

PATIENT
  Age: 56 Year
  Sex: Female
  Weight: 89.8 kg

DRUGS (3)
  1. VENTOLIN HFA [Suspect]
     Indication: BRONCHITIS
     Dosage: 1-2 puffs 4-6 hrs po prn
     Route: 048
  2. VENTOLIN HFA [Suspect]
     Indication: DISEASE RECURRENCE
     Dosage: 1-2 puffs 4-6 hrs po prn
     Route: 048
  3. PROAIR HFA [Suspect]
     Dosage: 1-2 puffs 4-6hrs po prn
     Route: 048

REACTIONS (5)
  - Feeling jittery [None]
  - Nausea [None]
  - Self-medication [None]
  - Hypersensitivity [None]
  - Sensitisation [None]
